FAERS Safety Report 13648107 (Version 1)
Quarter: 2017Q2

REPORT INFORMATION
  Report Type: Spontaneous
  Country: US (occurrence: US)
  Receive Date: 20170613
  Receipt Date: 20170613
  Transmission Date: 20170830
  Serious: No
  Sender: FDA-Public Use
  Company Number: US-BAYER-2017-113528

PATIENT
  Sex: Female
  Weight: 85 kg

DRUGS (4)
  1. ANTIHEMOPHILIC FACTOR VIII, PLASMA/ALBUMIN-FREE (RECOMBINANT) [Concomitant]
     Indication: HAEMORRHAGE
     Dosage: 2000 U, PRN MILD BLEEDS
     Route: 042
  2. ANTIHEMOPHILIC FACTOR VIII, PLASMA/ALBUMIN-FREE (RECOMBINANT) [Concomitant]
     Indication: HAEMORRHAGE
     Dosage: 3000 U, PRN SEVERE BLEEDS
     Route: 042
  3. BAYER ASPIRIN [Suspect]
     Active Substance: ASPIRIN
     Dosage: UNK
  4. ALEVE [Suspect]
     Active Substance: NAPROXEN SODIUM
     Dosage: UNK

REACTIONS (1)
  - Drug hypersensitivity [Unknown]
